FAERS Safety Report 23813529 (Version 1)
Quarter: 2024Q2

REPORT INFORMATION
  Report Type: Spontaneous
  Country: ES (occurrence: GB)
  Receive Date: 20240503
  Receipt Date: 20240503
  Transmission Date: 20240716
  Serious: Yes (Death, Hospitalization, Other)
  Sender: FDA-Public Use
  Company Number: GB-Breckenridge Pharmaceutical, Inc.-2156449

PATIENT
  Age: 51 Year
  Sex: Male

DRUGS (8)
  1. OMEPRAZOLE [Suspect]
     Active Substance: OMEPRAZOLE
  2. AMPICILLIN AND SULBACTAM [Concomitant]
     Active Substance: AMPICILLIN SODIUM\SULBACTAM SODIUM
  3. ACETAMINOPHEN [Concomitant]
     Active Substance: ACETAMINOPHEN
  4. SULFAMETHOXAZOLE [Concomitant]
     Active Substance: SULFAMETHOXAZOLE
  5. TRIMETHOPRIM [Concomitant]
     Active Substance: TRIMETHOPRIM
  6. CEFEPIME [Concomitant]
     Active Substance: CEFEPIME HYDROCHLORIDE
  7. SEMAGLUTIDE [Concomitant]
     Active Substance: SEMAGLUTIDE
  8. METRONIDAZOLE [Concomitant]
     Active Substance: METRONIDAZOLE

REACTIONS (8)
  - Cardiac arrest [Fatal]
  - Hepatic lesion [Fatal]
  - Thrombosis [Fatal]
  - Chills [Fatal]
  - Nausea [Fatal]
  - Abdominal distension [Fatal]
  - Abdominal pain [Fatal]
  - Tachycardia [Fatal]
